FAERS Safety Report 9418280 (Version 3)
Quarter: 2013Q3

REPORT INFORMATION
  Report Type: Spontaneous
  Country: US (occurrence: US)
  Receive Date: 20130724
  Receipt Date: 20130822
  Transmission Date: 20140515
  Serious: No
  Sender: FDA-Public Use
  Company Number: US-009507513-1307USA011496

PATIENT
  Age: 18 Year
  Sex: Female
  Weight: 54.87 kg

DRUGS (1)
  1. NEXPLANON [Suspect]
     Dosage: 68 MG/ONE ROD
     Route: 059
     Dates: start: 20130716, end: 20130716

REACTIONS (2)
  - Device difficult to use [Unknown]
  - No adverse event [Unknown]
